FAERS Safety Report 8089645-8 (Version None)
Quarter: 2012Q1

REPORT INFORMATION
  Report Type: 
  Country: None (occurrence: None)
  Receive Date: 20120128
  Receipt Date: 20110725
  Transmission Date: 20120608
  Serious: No
  Sender: FDA-Public Use
  Company Number: US-ABBOTT-11P-163-0728415-00

PATIENT
  Sex: Male
  Weight: 93.524 kg

DRUGS (2)
  1. PLAQUENIL [Concomitant]
     Indication: PRODUCT USED FOR UNKNOWN INDICATION
  2. HUMIRA [Suspect]
     Indication: RHEUMATOID ARTHRITIS
     Dates: start: 20100615, end: 20110210

REACTIONS (11)
  - PARAESTHESIA [None]
  - PROSTATITIS [None]
  - SKIN BURNING SENSATION [None]
  - TESTICULAR PAIN [None]
  - MUSCLE ATROPHY [None]
  - FATIGUE [None]
  - WEIGHT DECREASED [None]
  - ABDOMINAL PAIN LOWER [None]
  - HEADACHE [None]
  - SINUSITIS [None]
  - MASTOIDITIS [None]
